FAERS Safety Report 7970519-5 (Version None)
Quarter: 2011Q4

REPORT INFORMATION
  Report Type: 
  Country: None (occurrence: None)
  Receive Date: 20111212
  Receipt Date: 20111201
  Transmission Date: 20120403
  Serious: Yes (Hospitalization, Other)
  Sender: FDA-Public Use
  Company Number: GB-SANOFI-AVENTIS-2011SA079270

PATIENT
  Sex: Male

DRUGS (1)
  1. LANTUS [Suspect]
     Route: 065
     Dates: start: 20010101

REACTIONS (2)
  - HYPOGLYCAEMIA [None]
  - CONVULSION [None]
